FAERS Safety Report 8245222 (Version 2)
Quarter: 2012Q4

REPORT INFORMATION
  Report Type: Report from Study
  Country: IN (occurrence: US)
  Receive Date: 20111115
  Receipt Date: 20120906
  Transmission Date: 20130627
  Serious: Yes (Death, Hospitalization)
  Sender: FDA-Public Use
  Company Number: US-BRISTOL-MYERS SQUIBB COMPANY-15221781

PATIENT
  Age: 68 Year
  Sex: Male

DRUGS (13)
  1. IPILIMUMAB [Suspect]
     Indication: MALIGNANT MELANOMA
     Dosage: 3mg/kg
     Route: 042
     Dates: start: 20100512, end: 20100714
  2. BUSPAR [Concomitant]
     Dosage: Dosage:2tabs/4/day
also 15Jun2008
     Dates: start: 20080601
  3. ZOCOR [Concomitant]
     Route: 048
     Dates: start: 20070601
  4. ZYPREXA [Concomitant]
     Dosage: Dosagge:at bedtime
     Route: 048
     Dates: start: 20060601
  5. FLOMAX [Concomitant]
     Route: 048
     Dates: start: 20090615
  6. AMBIEN [Concomitant]
     Dosage: 15Jun2005, PRN
     Dates: start: 20050601
  7. REMERON [Concomitant]
     Route: 048
     Dates: start: 20100215
  8. ATIVAN [Concomitant]
  9. AVALIDE [Concomitant]
     Dosage: Dosage:300/25 half-tab
     Route: 048
     Dates: start: 20070601
  10. EFFEXOR [Concomitant]
     Dosage: Dosage:in Morning
     Dates: start: 20060615
  11. MULTIVITAMIN [Concomitant]
     Dosage: 1 df:1 unit not specified
     Route: 048
     Dates: start: 20000615
  12. BABY ASPIRIN [Concomitant]
     Dosage: Dosage:at bed time
     Route: 048
     Dates: start: 20080601
  13. EFFEXOR XR [Concomitant]
     Dates: start: 20060601

REACTIONS (2)
  - Malignant neoplasm progression [Fatal]
  - Hyponatraemia [Recovered/Resolved]
